FAERS Safety Report 10952749 (Version 1)
Quarter: 2015Q1

REPORT INFORMATION
  Report Type: Spontaneous
  Country: US (occurrence: None)
  Receive Date: 20150226
  Receipt Date: 20150226
  Transmission Date: 20150721
  Serious: Yes (Life-Threatening)
  Sender: FDA-Public Use
  Company Number: TAP2006Q00168

PATIENT
  Age: 28 Year
  Sex: Female
  Weight: 61.4 kg

DRUGS (2)
  1. PREVACID [Suspect]
     Active Substance: LANSOPRAZOLE
     Indication: GASTROOESOPHAGEAL REFLUX DISEASE
     Dosage: AS REQUIRED,
     Route: 048
     Dates: start: 200101, end: 200503
  2. UNSPECIFIED BIRTH CONTROL PILL (CONTRACEPTIVES FOR TOPICAL USE) [Concomitant]

REACTIONS (4)
  - Anaphylactic reaction [None]
  - Pruritus generalised [None]
  - Pharyngeal oedema [None]
  - Oedema peripheral [None]

NARRATIVE: CASE EVENT DATE: 200501
